FAERS Safety Report 10693658 (Version 1)
Quarter: 2015Q1

REPORT INFORMATION
  Report Type: Spontaneous
  Country: US (occurrence: US)
  Receive Date: 20150106
  Receipt Date: 20150106
  Transmission Date: 20150721
  Serious: Yes (Other)
  Sender: FDA-Public Use
  Company Number: US-BAYER-2015-000375

PATIENT
  Age: 37 Year
  Sex: Female
  Weight: 107 kg

DRUGS (4)
  1. COUMADIN [Concomitant]
     Active Substance: WARFARIN SODIUM
  2. BAYER GENUINE ASPIRIN [Suspect]
     Active Substance: ASPIRIN
  3. OXYMETAZOLINE [Suspect]
     Active Substance: OXYMETAZOLINE
     Indication: PRODUCT USED FOR UNKNOWN INDICATION
  4. REMODULIN [Suspect]
     Active Substance: TREPROSTINIL
     Indication: PULMONARY HYPERTENSION
     Dosage: 2.5 MG/ML, (64 NG/KG/MIN)
     Route: 041
     Dates: start: 20070401

REACTIONS (4)
  - Injection site discharge [Unknown]
  - Dyspnoea [Unknown]
  - Feeling abnormal [Unknown]
  - Device related infection [Unknown]

NARRATIVE: CASE EVENT DATE: 201412
